FAERS Safety Report 21521362 (Version 2)
Quarter: 2025Q2

REPORT INFORMATION
  Report Type: Spontaneous
  Country: CA (occurrence: CA)
  Receive Date: 20221028
  Receipt Date: 20250602
  Transmission Date: 20250716
  Serious: Yes (Other)
  Sender: ALEXION PHARMACEUTICALS
  Company Number: 2021A112016

PATIENT

DRUGS (3)
  1. PULMICORT TURBUHALER [Suspect]
     Active Substance: BUDESONIDE
     Indication: Multiple allergies
  2. MEPOLIZUMAB [Suspect]
     Active Substance: MEPOLIZUMAB
     Indication: Asthma
     Dosage: 100 MG, Z (MONTHLY), FREQUENCY: UNK
  3. PREDNISONE [Suspect]
     Active Substance: PREDNISONE
     Route: 065

REACTIONS (8)
  - Lower respiratory tract infection [Unknown]
  - Menstrual disorder [Unknown]
  - Eye discharge [Unknown]
  - Productive cough [Unknown]
  - Hypersensitivity [Unknown]
  - Social problem [Unknown]
  - Pneumonia [Unknown]
  - Weight decreased [Unknown]
